FAERS Safety Report 7714483-2 (Version None)
Quarter: 2011Q3

REPORT INFORMATION
  Report Type: 
  Country: None (occurrence: None)
  Receive Date: 20110829
  Receipt Date: 20110817
  Transmission Date: 20111222
  Serious: No
  Sender: FDA-Public Use
  Company Number: FR-JNJFOC-20110605613

PATIENT
  Sex: Female
  Weight: 65 kg

DRUGS (1)
  1. DURAGESIC-100 [Suspect]
     Indication: MULTIPLE MYELOMA
     Dosage: 37.5 UG/HR (1 PATCH OF 12.5 AND 25 UG/HR)
     Route: 062
     Dates: start: 20100301

REACTIONS (3)
  - DRUG INEFFECTIVE [None]
  - PRODUCT ADHESION ISSUE [None]
  - WRONG TECHNIQUE IN DRUG USAGE PROCESS [None]
